FAERS Safety Report 26128189 (Version 1)
Quarter: 2025Q4

REPORT INFORMATION
  Report Type: Spontaneous
  Country: CA (occurrence: CA)
  Receive Date: 20251207
  Receipt Date: 20251207
  Transmission Date: 20260118
  Serious: Yes (Other)
  Sender: GLAXOSMITHKLINE
  Company Number: CA-GLAXOSMITHKLINE INC-CA2025AMR153355

PATIENT
  Age: 85 Year
  Sex: Male

DRUGS (6)
  1. NUCALA [Suspect]
     Active Substance: MEPOLIZUMAB
     Indication: Asthma
     Dosage: 100 MG, X12 MONTHS
  2. NUCALA [Suspect]
     Active Substance: MEPOLIZUMAB
     Indication: Eosinophilic granulomatosis with polyangiitis
  3. PREDNISONE [Concomitant]
     Active Substance: PREDNISONE
     Indication: Asthma
     Dosage: 20 MG
  4. PREDNISONE [Concomitant]
     Active Substance: PREDNISONE
     Indication: Eosinophilic granulomatosis with polyangiitis
     Dosage: 5 MG
  5. METHOTREXATE [Concomitant]
     Active Substance: METHOTREXATE
     Indication: Asthma
     Dosage: UNK
  6. METHOTREXATE [Concomitant]
     Active Substance: METHOTREXATE
     Indication: Eosinophilic granulomatosis with polyangiitis

REACTIONS (4)
  - Eosinophilic granulomatosis with polyangiitis [Unknown]
  - Condition aggravated [Unknown]
  - Asthma [Unknown]
  - Off label use [Unknown]
